FAERS Safety Report 12960333 (Version 1)
Quarter: 2016Q4

REPORT INFORMATION
  Report Type: Spontaneous
  Country: NL (occurrence: NL)
  Receive Date: 20161121
  Receipt Date: 20161121
  Transmission Date: 20170207
  Serious: Yes (Other)
  Sender: FDA-Public Use
  Company Number: NL-TEVA-712637ACC

PATIENT
  Age: 69 Year
  Sex: Male
  Weight: 76 kg

DRUGS (3)
  1. METHOTREXATE (METHOTREXATE SODIUM) [Suspect]
     Active Substance: METHOTREXATE SODIUM
     Indication: PSORIASIS
     Dosage: 12.5 MILLIGRAM DAILY; 1 TIME PER WEEK 5 PIECE(S)
     Route: 048
     Dates: start: 201304
  2. FOLIUMZUUR [Concomitant]
     Active Substance: FOLIC ACID
     Dosage: 1 TIME PER WEEK 1 PIECE(S)
     Route: 048
     Dates: start: 201304
  3. DOVOBET GEL [Concomitant]
     Dosage: 1 DOSAGE FORMS DAILY; ONCE DAILY THIN LUBRICATE
     Route: 003
     Dates: start: 201304

REACTIONS (2)
  - Head discomfort [Recovered/Resolved]
  - Deafness [Recovered/Resolved]

NARRATIVE: CASE EVENT DATE: 201603
